FAERS Safety Report 22207443 (Version 1)
Quarter: 2023Q2

REPORT INFORMATION
  Report Type: Spontaneous
  Country: CN (occurrence: CN)
  Receive Date: 20230413
  Receipt Date: 20230413
  Transmission Date: 20230721
  Serious: Yes (Hospitalization)
  Sender: FDA-Public Use
  Company Number: CN-PFIZER INC-PV202300066751

PATIENT
  Age: 4 Year
  Sex: Male
  Weight: 13.5 kg

DRUGS (3)
  1. EPIRUBICIN [Suspect]
     Active Substance: EPIRUBICIN
     Indication: Neuroblastoma
     Dosage: 12.5 MG, 1X/DAY
     Route: 041
     Dates: start: 20230127, end: 20230129
  2. CYCLOPHOSPHAMIDE [Suspect]
     Active Substance: CYCLOPHOSPHAMIDE
     Indication: Neuroblastoma
     Dosage: 0.9 G, 1X/DAY
     Route: 041
     Dates: start: 20230127, end: 20230128
  3. VINDESINE SULFATE [Suspect]
     Active Substance: VINDESINE SULFATE
     Indication: Neuroblastoma
     Dosage: 1.5 MG, 1X/DAY
     Route: 041
     Dates: start: 20230127, end: 20230127

REACTIONS (1)
  - Myelosuppression [Recovering/Resolving]

NARRATIVE: CASE EVENT DATE: 20230203
